FAERS Safety Report 6107726-2 (Version None)
Quarter: 2009Q1

REPORT INFORMATION
  Report Type: 
  Country: None (occurrence: None)
  Receive Date: 20090305
  Receipt Date: 20090305
  Transmission Date: 20090719
  Serious: No
  Sender: FDA-Public Use
  Company Number: None

PATIENT
  Age: 60 Year
  Sex: Male
  Weight: 71.12 kg

DRUGS (1)
  1. AZITHROMYCIN [Suspect]
     Indication: ASPERGILLOSIS
     Dosage: 250 MG OTHER PO
     Route: 048
     Dates: start: 20080729, end: 20081028

REACTIONS (1)
  - MYALGIA [None]
